FAERS Safety Report 4627685-9 (Version None)
Quarter: 2005Q2

REPORT INFORMATION
  Report Type: 
  Country: None (occurrence: None)
  Receive Date: 20050401
  Receipt Date: 20050302
  Transmission Date: 20051028
  Serious: Yes (Death)
  Sender: FDA-Public Use
  Company Number: 2005S1000914

PATIENT
  Age: 77 Year
  Sex: Male
  Weight: 69.8539 kg

DRUGS (14)
  1. CLOZAPINE [Suspect]
     Dosage: 25 MG; HS; PO
     Route: 048
     Dates: start: 20050131, end: 20050206
  2. ATORVASTATIN CALCIUM [Concomitant]
  3. ALFUZOSIN HYDROCHLORIDE [Concomitant]
  4. DUTASTERIDE [Concomitant]
  5. LISINOPRIL [Concomitant]
  6. ROSIGLITAZONE MALEATE [Concomitant]
  7. ASCORBIC ACID [Concomitant]
  8. GALANTAMINE HYDROBROMIDE [Concomitant]
  9. AMANTADINE HCL [Concomitant]
  10. TOCOPHEROL CONCENTRATE CAP [Concomitant]
  11. PSEUDOEPHEDRINE SULFATE/LORATADINE [Concomitant]
  12. MULTIVITAMINS, PLAIN [Concomitant]
  13. TOLTERODNE L-TARTRATE [Concomitant]
  14. ZAFIRLUKAST [Concomitant]

REACTIONS (1)
  - DEATH [None]
